FAERS Safety Report 20931527 (Version 1)
Quarter: 2022Q2

REPORT INFORMATION
  Report Type: Spontaneous
  Country: US (occurrence: None)
  Receive Date: 20220607
  Receipt Date: 20220607
  Transmission Date: 20220720
  Serious: Yes (Hospitalization)
  Sender: FDA-Public Use
  Company Number: None

PATIENT
  Age: 68 Year
  Sex: Female
  Weight: 65.3 kg

DRUGS (1)
  1. EVUSHELD [Suspect]
     Active Substance: CILGAVIMAB\TIXAGEVIMAB
     Indication: Immunodeficiency
     Dosage: OTHER FREQUENCY : ONCE;?
     Route: 030
     Dates: start: 20220531, end: 20220531

REACTIONS (4)
  - Pharyngeal swelling [None]
  - Dysphagia [None]
  - Dyspnoea [None]
  - Dermatitis contact [None]

NARRATIVE: CASE EVENT DATE: 20220531
